FAERS Safety Report 5948659-1 (Version None)
Quarter: 2008Q4

REPORT INFORMATION
  Report Type: 
  Country: None (occurrence: None)
  Receive Date: 20081111
  Receipt Date: 20081106
  Transmission Date: 20090506
  Serious: Yes (Hospitalization)
  Sender: FDA-Public Use
  Company Number: US-ASTRAZENECA-2008UW22582

PATIENT
  Age: 48 Year
  Sex: Female
  Weight: 104.3 kg

DRUGS (2)
  1. PULMICORT-100 [Suspect]
     Indication: ASTHMA
     Route: 055
  2. ALBUTEROL (PRN) [Concomitant]

REACTIONS (2)
  - DRUG INEFFECTIVE [None]
  - PNEUMONIA [None]
